FAERS Safety Report 15243597 (Version 1)
Quarter: 2018Q3

REPORT INFORMATION
  Report Type: Spontaneous
  Country: US (occurrence: US)
  Receive Date: 20180806
  Receipt Date: 20180806
  Transmission Date: 20181010
  Serious: No
  Sender: FDA-Public Use
  Company Number: US-FERRINGPH-2018FE01685

PATIENT
  Age: 37 Year
  Sex: Female
  Weight: 81.63 kg

DRUGS (9)
  1. MENOPUR [Suspect]
     Active Substance: FOLLITROPIN\LUTEINIZING HORMONE
     Dosage: FOUR 75 IU VIALS DAILY FOR 8 TO 10 DAYS
     Route: 058
     Dates: start: 201803, end: 201803
  2. GANIRELIX [Concomitant]
     Active Substance: GANIRELIX
     Indication: INFERTILITY
     Route: 065
  3. ESTRACE [Concomitant]
     Active Substance: ESTRADIOL
     Indication: INFERTILITY
     Route: 065
  4. HCG [Concomitant]
     Active Substance: GONADOTROPHIN, CHORIONIC
     Indication: INFERTILITY
     Dosage: 10000 U, ONCE/SINGLE
     Route: 065
  5. APRISO [Concomitant]
     Active Substance: MESALAMINE
     Indication: PRODUCT USED FOR UNKNOWN INDICATION
     Route: 065
  6. ENDOMETRIN [Suspect]
     Active Substance: PROGESTERONE
     Indication: ASSISTED FERTILISATION
     Dosage: UNK
     Route: 067
     Dates: start: 201801
  7. MENOPUR [Suspect]
     Active Substance: FOLLITROPIN\LUTEINIZING HORMONE
     Indication: ASSISTED FERTILISATION
     Dosage: TWO 75IU VIALS DAILY FOR 8?10 DAYS
     Route: 058
     Dates: start: 201801, end: 201801
  8. FOLLISTIM [Concomitant]
     Active Substance: FOLLITROPIN
     Indication: INFERTILITY
     Route: 065
  9. PRENATAL VITAMINS                  /02014401/ [Concomitant]
     Active Substance: VITAMINS
     Indication: PRODUCT USED FOR UNKNOWN INDICATION
     Route: 065

REACTIONS (2)
  - Drug ineffective [Recovered/Resolved]
  - Biochemical pregnancy [Recovered/Resolved]

NARRATIVE: CASE EVENT DATE: 201801
